FAERS Safety Report 9491697 (Version 1)
Quarter: 2013Q3

REPORT INFORMATION
  Report Type: Spontaneous
  Country: IT (occurrence: IT)
  Receive Date: 20130830
  Receipt Date: 20130830
  Transmission Date: 20140515
  Serious: Yes (Other)
  Sender: FDA-Public Use
  Company Number: IT-MYLANLABS-2013S1018725

PATIENT
  Age: 44 Year
  Sex: Female

DRUGS (6)
  1. PACLITAXEL [Suspect]
     Indication: INVASIVE DUCTAL BREAST CARCINOMA
     Dosage: CYCLIC
     Route: 042
     Dates: start: 20130722, end: 20130722
  2. ADRIBLASTINA [Concomitant]
     Indication: INVASIVE DUCTAL BREAST CARCINOMA
     Dates: start: 20130722, end: 20130722
  3. CHLOR-TRIMETON /00072502/ [Concomitant]
     Indication: ALLERGY PROPHYLAXIS
  4. FLEBOCORTID [Concomitant]
     Indication: ALLERGY PROPHYLAXIS
  5. RANIDIL [Concomitant]
     Indication: PRODUCT USED FOR UNKNOWN INDICATION
  6. ONDANSETRON KABI [Concomitant]
     Indication: PROPHYLAXIS OF NAUSEA AND VOMITING

REACTIONS (3)
  - Dyspnoea [Recovered/Resolved]
  - Feeling hot [Recovered/Resolved]
  - Hypertension [Recovered/Resolved]
